FAERS Safety Report 22255334 (Version 1)
Quarter: 2023Q2

REPORT INFORMATION
  Report Type: Spontaneous
  Country: US (occurrence: None)
  Receive Date: 20230426
  Receipt Date: 20230426
  Transmission Date: 20230721
  Serious: Yes (Hospitalization)
  Sender: FDA-Public Use
  Company Number: None

PATIENT
  Age: 84 Year
  Sex: Female
  Weight: 66 kg

DRUGS (1)
  1. MOLNUPIRAVIR [Suspect]
     Active Substance: MOLNUPIRAVIR
     Indication: COVID-19
     Dosage: FREQUENCY : TWICE A DAY;?
     Route: 048
     Dates: start: 20230420, end: 20230424

REACTIONS (4)
  - Anaemia [None]
  - Upper gastrointestinal haemorrhage [None]
  - Melaena [None]
  - Therapy interrupted [None]

NARRATIVE: CASE EVENT DATE: 20230424
